FAERS Safety Report 9717499 (Version 1)
Quarter: 2013Q4

REPORT INFORMATION
  Report Type: Spontaneous
  Country: JP (occurrence: JP)
  Receive Date: 20131127
  Receipt Date: 20131127
  Transmission Date: 20140711
  Serious: Yes (Other)
  Sender: FDA-Public Use
  Company Number: JP-ABBVIE-13P-087-1171379-00

PATIENT
  Age: 72 Year
  Sex: Female

DRUGS (3)
  1. ULTANE (SEVOFRANE) [Suspect]
     Indication: PRODUCT USED FOR UNKNOWN INDICATION
  2. SUGAMMADEX SODIUM [Suspect]
     Indication: PRODUCT USED FOR UNKNOWN INDICATION
  3. PHENYLEPHRINE HYDROCHLORIDE [Suspect]
     Indication: PRODUCT USED FOR UNKNOWN INDICATION

REACTIONS (1)
  - Pulseless electrical activity [Unknown]
